FAERS Safety Report 4298985-X (Version None)
Quarter: 2004Q1

REPORT INFORMATION
  Report Type: 
  Country: None (occurrence: None)
  Receive Date: 20040217
  Receipt Date: 20040206
  Transmission Date: 20041129
  Serious: Yes (Hospitalization)
  Sender: FDA-Public Use
  Company Number: FRWYE506113JAN04

PATIENT
  Age: 38 Year
  Sex: Female

DRUGS (6)
  1. EFFEXOR [Suspect]
     Dosage: TAKEN IN ALTERNATION WITH DEROXAT
     Route: 048
     Dates: start: 20030726, end: 20030806
  2. AOTAL (ACAMPROSATE) [Concomitant]
  3. VITAMIN B (VITAMIN B) [Concomitant]
  4. CLAFORAN [Concomitant]
  5. OFLOXACIN [Concomitant]
  6. PAROXETINE HCL [Suspect]
     Dosage: TAKEN IN ALTERNATION WITH EFFEXOR
     Route: 048
     Dates: start: 20030726, end: 20030806

REACTIONS (7)
  - COMA [None]
  - HYPERTHERMIA [None]
  - PNEUMONIA [None]
  - RHABDOMYOLYSIS [None]
  - THROMBOCYTOPENIA [None]
  - URINARY TRACT INFECTION ENTEROCOCCAL [None]
  - URINARY TRACT INFECTION PSEUDOMONAL [None]
